FAERS Safety Report 18271606 (Version 5)
Quarter: 2020Q4

REPORT INFORMATION
  Report Type: Report from Study
  Country: CN (occurrence: CN)
  Receive Date: 20200916
  Receipt Date: 20201113
  Transmission Date: 20210113
  Serious: Yes (Hospitalization, Disabling)
  Sender: FDA-Public Use
  Company Number: CN-ROCHE-2673283

PATIENT
  Age: 35 Year
  Sex: Female
  Weight: 55 kg

DRUGS (23)
  1. OMEPRAZOLE MAGNESIUM. [Concomitant]
     Active Substance: OMEPRAZOLE MAGNESIUM
     Indication: PROPHYLAXIS
     Route: 048
     Dates: start: 20200825, end: 20200825
  2. PEMETREXED. [Suspect]
     Active Substance: PEMETREXED
     Indication: NON-SMALL CELL LUNG CANCER
     Dosage: MOST RECENT DOSE PRIOR TO SERIOUS ADVERSE EVENT ONSET: 26/AUG/2020 (755 MG)
     Route: 042
     Dates: start: 20200826
  3. FOLIC ACID. [Concomitant]
     Active Substance: FOLIC ACID
     Indication: PROPHYLAXIS
     Dates: start: 20200819
  4. DEXAMETHASONE ACETATE [Concomitant]
     Active Substance: DEXAMETHASONE ACETATE
     Route: 048
     Dates: start: 20200826, end: 20200826
  5. BICYCLOL [Concomitant]
     Active Substance: BICYCLOL
     Indication: PROPHYLAXIS
     Dosage: PROTECT LIVER
     Dates: start: 20201014
  6. LANSOPRAZOLE. [Concomitant]
     Active Substance: LANSOPRAZOLE
     Indication: PROPHYLAXIS
     Route: 048
     Dates: start: 20201026, end: 20201026
  7. DEXAMETHASONE ACETATE [Concomitant]
     Active Substance: DEXAMETHASONE ACETATE
     Indication: PROPHYLAXIS
     Route: 048
     Dates: start: 20200825, end: 20200825
  8. DIAMMONIUM GLYCYRRHIZINATE [Concomitant]
     Active Substance: HERBALS\DIAMMONIUM GLYCYRRHIZINATE
     Route: 048
     Dates: start: 20200902, end: 20200904
  9. DEXAMETHASONE ACETATE [Concomitant]
     Active Substance: DEXAMETHASONE ACETATE
     Route: 048
     Dates: start: 20200828, end: 20200828
  10. GLUTATHIONE [Concomitant]
     Active Substance: GLUTATHIONE
     Route: 048
     Dates: start: 20200902, end: 20200904
  11. BEVACIZUMAB. [Suspect]
     Active Substance: BEVACIZUMAB
     Indication: NON-SMALL CELL LUNG CANCER
     Dosage: MOST RECENT DOSE PRIOR TO SERIOUS ADVERSE EVENT ONSET: 26/AUG/2020 (825 MG)
     Route: 042
     Dates: start: 20200826
  12. DIAMMONIUM GLYCYRRHIZINATE [Concomitant]
     Active Substance: HERBALS\DIAMMONIUM GLYCYRRHIZINATE
     Dosage: PROTECT LIVER
     Route: 048
     Dates: start: 20200827, end: 20200916
  13. GLUTATHIONE [Concomitant]
     Active Substance: GLUTATHIONE
     Indication: PROPHYLAXIS
     Route: 042
     Dates: start: 20200902, end: 20200904
  14. GLUTATHIONE [Concomitant]
     Active Substance: GLUTATHIONE
     Route: 048
     Dates: start: 20200827, end: 20200907
  15. DEXAMETHASONE ACETATE [Concomitant]
     Active Substance: DEXAMETHASONE ACETATE
     Route: 048
     Dates: start: 20200826, end: 20200827
  16. GLUTATHIONE [Concomitant]
     Active Substance: GLUTATHIONE
     Dates: start: 20200905, end: 20200907
  17. LEUCOGEN TABLETS [Concomitant]
     Dosage: PREVENT LEUKOPENIA AND THROMBOCYTOPENIA
     Route: 048
     Dates: start: 20200827, end: 20200911
  18. URSODEOXYCHOLIC ACID [Concomitant]
     Active Substance: URSODIOL
     Indication: PROPHYLAXIS
     Dosage: PROTECT LIVER
     Dates: start: 20201014
  19. CARBOPLATIN. [Suspect]
     Active Substance: CARBOPLATIN
     Indication: NON-SMALL CELL LUNG CANCER
     Dosage: INITIAL TARGET AUC OF 6 MG/ML/MIN?MOST RECENT DOSE PRIOR TO SERIOUS ADVERSE EVENT ONSET: 26/AUG/2020
     Route: 042
     Dates: start: 20200826
  20. OMEPRAZOLE MAGNESIUM. [Concomitant]
     Active Substance: OMEPRAZOLE MAGNESIUM
     Route: 048
     Dates: start: 20200827, end: 20200910
  21. DIAMMONIUM GLYCYRRHIZINATE [Concomitant]
     Active Substance: HERBALS\DIAMMONIUM GLYCYRRHIZINATE
     Indication: PROPHYLAXIS
     Route: 042
     Dates: start: 20200902, end: 20200904
  22. PLACEBO [Suspect]
     Active Substance: UNSPECIFIED INGREDIENT
     Indication: NON-SMALL CELL LUNG CANCER
     Dosage: MOST RECENT DOSE PRIOR TO SERIOUS ADVERSE EVENT ONSET: 26/AUG/2020
     Route: 042
  23. DIAMMONIUM GLYCYRRHIZINATE [Concomitant]
     Active Substance: HERBALS\DIAMMONIUM GLYCYRRHIZINATE
     Route: 048
     Dates: start: 20200905, end: 20200916

REACTIONS (1)
  - Hepatic function abnormal [Not Recovered/Not Resolved]

NARRATIVE: CASE EVENT DATE: 20200901
